FAERS Safety Report 4266730-X (Version None)
Quarter: 2004Q1

REPORT INFORMATION
  Report Type: 
  Country: None (occurrence: None)
  Receive Date: 20040108
  Receipt Date: 20031229
  Transmission Date: 20041129
  Serious: Yes (Hospitalization)
  Sender: FDA-Public Use
  Company Number: CA-GLAXOSMITHKLINE-A0490894A

PATIENT

DRUGS (2)
  1. TOPOTECAN [Suspect]
     Indication: OVARIAN CANCER
     Route: 042
  2. GEMCITABINE [Suspect]
     Indication: OVARIAN CANCER
     Route: 042

REACTIONS (1)
  - HEPATITIS [None]
